FAERS Safety Report 7788977-8 (Version None)
Quarter: 2011Q3

REPORT INFORMATION
  Report Type: 
  Country: None (occurrence: None)
  Receive Date: 20110930
  Receipt Date: 20110927
  Transmission Date: 20111222
  Serious: Yes (Death, Hospitalization)
  Sender: FDA-Public Use
  Company Number: PHHO2011BE13944

PATIENT
  Sex: Male
  Weight: 73 kg

DRUGS (5)
  1. AFINITOR [Suspect]
     Dosage: 10 MG, UNK
     Dates: end: 20110831
  2. MEDROL [Concomitant]
     Indication: PROPHYLAXIS
     Dosage: 8 MG, QD
     Dates: start: 20110601, end: 20110912
  3. AFINITOR [Suspect]
     Indication: NEUROENDOCRINE TUMOUR
     Dosage: 10 MG, UNK
     Dates: start: 20110715, end: 20110817
  4. BUMETANIDE [Concomitant]
     Indication: OEDEMA
     Dosage: 2.5 MG, QD
     Dates: start: 20110601, end: 20110912
  5. PANTOPRAZOLE [Concomitant]
     Indication: PROPHYLAXIS
     Dosage: 40 MG, QD
     Dates: start: 20110601, end: 20110912

REACTIONS (3)
  - NEOPLASM PROGRESSION [None]
  - NEOPLASM MALIGNANT [None]
  - GENERAL PHYSICAL HEALTH DETERIORATION [None]
